FAERS Safety Report 4300281-9 (Version None)
Quarter: 2004Q1

REPORT INFORMATION
  Report Type: 
  Country: None (occurrence: None)
  Receive Date: 20040220
  Receipt Date: 20030411
  Transmission Date: 20041129
  Serious: Yes (Death)
  Sender: FDA-Public Use
  Company Number: WAES 0304USA01429

PATIENT
  Age: 62 Year
  Sex: Female
  Weight: 100 kg

DRUGS (5)
  1. NORVASC [Concomitant]
     Dates: start: 19970109, end: 20010406
  2. PREMARIN [Concomitant]
     Dates: start: 20000918, end: 20010406
  3. DYAZIDE [Concomitant]
     Dates: start: 20000327
  4. SULAR [Concomitant]
  5. VIOXX [Suspect]
     Indication: ARTHROPATHY
     Route: 048
     Dates: start: 20001113, end: 20010407

REACTIONS (7)
  - CALCINOSIS [None]
  - CHONDROCALCINOSIS [None]
  - DERMAL CYST [None]
  - HEADACHE [None]
  - INSOMNIA [None]
  - MYALGIA [None]
  - PULMONARY EMBOLISM [None]
